FAERS Safety Report 13726988 (Version 1)
Quarter: 2017Q3

REPORT INFORMATION
  Report Type: Report from Study
  Country: US (occurrence: US)
  Receive Date: 20170707
  Receipt Date: 20170707
  Transmission Date: 20171127
  Serious: Yes (Other)
  Sender: FDA-Public Use
  Company Number: US-JNJFOC-20170509869

PATIENT
  Age: 70 Year
  Sex: Male

DRUGS (1)
  1. IMBRUVICA [Suspect]
     Active Substance: IBRUTINIB
     Indication: CHRONIC LYMPHOCYTIC LEUKAEMIA
     Route: 048
     Dates: start: 20170223

REACTIONS (6)
  - Acne [Recovered/Resolved]
  - Throat lesion [Recovered/Resolved]
  - Penile haemorrhage [Recovered/Resolved]
  - Haemoptysis [Recovered/Resolved]
  - Rash papular [Unknown]
  - Ingrown hair [Recovered/Resolved]

NARRATIVE: CASE EVENT DATE: 201702
